FAERS Safety Report 25317223 (Version 2)
Quarter: 2025Q3

REPORT INFORMATION
  Report Type: Spontaneous
  Country: US (occurrence: US)
  Receive Date: 20250515
  Receipt Date: 20250711
  Transmission Date: 20251021
  Serious: Yes (Other)
  Sender: BIOVITRUM
  Company Number: US-BIOVITRUM-2025-US-003840

PATIENT
  Age: 82 Year
  Sex: Male

DRUGS (1)
  1. VONJO [Suspect]
     Active Substance: PACRITINIB
     Indication: Myelofibrosis
     Route: 048
     Dates: start: 20240924

REACTIONS (3)
  - Neoplasm malignant [Recovered/Resolved]
  - Diarrhoea [Unknown]
  - Product dose omission issue [Recovered/Resolved]
